FAERS Safety Report 18497472 (Version 3)
Quarter: 2021Q1

REPORT INFORMATION
  Report Type: Spontaneous
  Country: US (occurrence: US)
  Receive Date: 20201112
  Receipt Date: 20210304
  Transmission Date: 20210419
  Serious: Yes (Life-Threatening, Other)
  Sender: FDA-Public Use
  Company Number: US-PURDUE PHARMA-USA-2020-0176283

PATIENT
  Age: 45 Year
  Sex: Female

DRUGS (5)
  1. ADHANSIA XR [Suspect]
     Active Substance: METHYLPHENIDATE HYDROCHLORIDE
     Dosage: 35 MG, AM
     Route: 048
     Dates: start: 20201007, end: 20201012
  2. ADHANSIA XR [Suspect]
     Active Substance: METHYLPHENIDATE HYDROCHLORIDE
     Indication: ATTENTION DEFICIT HYPERACTIVITY DISORDER
     Dosage: 25 MG, DAILY
     Route: 048
     Dates: start: 20200921, end: 20201005
  3. ALPRAZOLAM. [Suspect]
     Active Substance: ALPRAZOLAM
     Indication: GENERALISED ANXIETY DISORDER
     Dosage: 1 MG, UNK
     Route: 065
  4. LEXAPRO [Suspect]
     Active Substance: ESCITALOPRAM OXALATE
     Indication: MAJOR DEPRESSION
     Dosage: 20 MG, UNK
     Route: 065
  5. VISTARIL                           /00058402/ [Suspect]
     Active Substance: HYDROXYZINE HYDROCHLORIDE
     Indication: PANIC DISORDER
     Dosage: 25 MG, UNK
     Route: 065

REACTIONS (5)
  - Panic attack [Recovered/Resolved]
  - Feeling abnormal [Recovered/Resolved]
  - Hyperhidrosis [Recovered/Resolved]
  - Suicidal ideation [Recovered/Resolved]
  - Drug ineffective [Unknown]

NARRATIVE: CASE EVENT DATE: 20201005
